FAERS Safety Report 9521691 (Version 1)
Quarter: 2013Q1

REPORT INFORMATION
  Report Type: Spontaneous
  Country: US (occurrence: None)
  Receive Date: 20130305
  Receipt Date: 20130305
  Transmission Date: 20140127
  Serious: Yes (Other)
  Sender: FDA-Public Use
  Company Number: 163-21880-12072970

PATIENT
  Age: 84 Year
  Sex: Male
  Weight: 77.11 kg

DRUGS (6)
  1. REVLIMID [Suspect]
     Indication: PLASMA CELL MYELOMA
     Route: 048
     Dates: start: 20120625, end: 201207
  2. METFORMIN (METFORMIN) (UNKNOWN) [Concomitant]
  3. GLIPIZIDE (GLIPIZIDE) (UNKNOWN) [Concomitant]
  4. ZOCOR (SIMVASTATIN) (UNKNOWN) [Concomitant]
  5. SYNTHROID (LEVOTHRYOXINE SODIUM) (UNKNOWN) [Concomitant]
  6. SIMVASTATIN [Concomitant]

REACTIONS (1)
  - Haemoglobin decreased [None]
